FAERS Safety Report 20164659 (Version 2)
Quarter: 2021Q4

REPORT INFORMATION
  Report Type: Spontaneous
  Country: AR (occurrence: AR)
  Receive Date: 20211209
  Receipt Date: 20211222
  Transmission Date: 20220303
  Serious: Yes (Hospitalization, Other)
  Sender: FDA-Public Use
  Company Number: AR-Accord-246644

PATIENT
  Age: 14 Year

DRUGS (1)
  1. AMLODIPINE [Suspect]
     Active Substance: AMLODIPINE BESYLATE
     Dosage: HIGH DOSE INGESTION?30 TABLETS OF 10 MG
     Route: 048

REACTIONS (9)
  - Suicide attempt [Unknown]
  - Overdose [Unknown]
  - Toxicity to various agents [Unknown]
  - Acute pulmonary oedema [Recovered/Resolved]
  - Pneumonia [Recovered/Resolved]
  - Haemodynamic instability [Recovered/Resolved]
  - Sinus tachycardia [Recovered/Resolved]
  - Hypotension [Recovered/Resolved]
  - Staphylococcal infection [Recovered/Resolved]
